FAERS Safety Report 21288915 (Version 1)
Quarter: 2022Q3

REPORT INFORMATION
  Report Type: Spontaneous
  Country: US (occurrence: US)
  Receive Date: 20220902
  Receipt Date: 20220902
  Transmission Date: 20221026
  Serious: No
  Sender: FDA-Public Use
  Company Number: US-ABBVIE-22K-163-4389026-00

PATIENT
  Age: 50 Year
  Sex: Female

DRUGS (5)
  1. BIAXIN [Suspect]
     Active Substance: CLARITHROMYCIN
     Indication: Product used for unknown indication
     Route: 065
  2. PREMARIN [Suspect]
     Active Substance: ESTROGENS, CONJUGATED
     Indication: Product used for unknown indication
     Dosage: FOR 14 DAYS AND THEN EVERY OTHER 3 DAYS
     Route: 067
  3. PFIZER-BIONTECH COVID-19 VACCINE [Suspect]
     Active Substance: TOZINAMERAN
     Indication: COVID-19 immunisation
     Dosage: FIRST DOSE
     Route: 030
  4. PFIZER-BIONTECH COVID-19 VACCINE [Suspect]
     Active Substance: TOZINAMERAN
     Dosage: SECOND DOSE
     Route: 030
  5. PFIZER-BIONTECH COVID-19 VACCINE [Suspect]
     Active Substance: TOZINAMERAN
     Dosage: THIRD DOSE
     Route: 030
     Dates: start: 20211210, end: 20211210

REACTIONS (25)
  - Drug hypersensitivity [Unknown]
  - Genital burning sensation [Unknown]
  - Discomfort [Unknown]
  - Headache [Unknown]
  - Hypertension [Unknown]
  - Abdominal distension [Unknown]
  - Nasopharyngitis [Unknown]
  - Chills [Unknown]
  - Peripheral swelling [Unknown]
  - Breast mass [Unknown]
  - Axillary mass [Unknown]
  - Lymphangitis [Unknown]
  - Urticaria [Unknown]
  - Mass [Unknown]
  - Fatigue [Unknown]
  - Insomnia [Unknown]
  - Discomfort [Unknown]
  - Groin pain [Unknown]
  - Arthritis [Unknown]
  - Swollen tongue [Unknown]
  - Drug hypersensitivity [Unknown]
  - Eczema [Unknown]
  - Skin reaction [Unknown]
  - Cystitis [Unknown]
  - Vulvovaginal dryness [Unknown]
